FAERS Safety Report 12242081 (Version 4)
Quarter: 2016Q4

REPORT INFORMATION
  Report Type: Spontaneous
  Country: FR (occurrence: FR)
  Receive Date: 20160406
  Receipt Date: 20161110
  Transmission Date: 20170207
  Serious: Yes (Hospitalization)
  Sender: FDA-Public Use
  Company Number: FR-PFIZER INC-2016187711

PATIENT
  Age: 39 Year
  Sex: Male

DRUGS (1)
  1. ADVIL [Suspect]
     Active Substance: IBUPROFEN
     Dosage: 14 DF, DAILY
     Route: 048
     Dates: start: 201602, end: 201603

REACTIONS (8)
  - Acute kidney injury [Recovered/Resolved with Sequelae]
  - Microangiopathic haemolytic anaemia [Unknown]
  - Hypertension [Recovered/Resolved]
  - Condition aggravated [Recovered/Resolved]
  - Hypertensive emergency [Unknown]
  - Overdose [Unknown]
  - Left ventricular failure [Unknown]
  - Retinopathy hypertensive [Unknown]

NARRATIVE: CASE EVENT DATE: 2016
